FAERS Safety Report 8338806-9 (Version None)
Quarter: 2012Q2

REPORT INFORMATION
  Report Type: 
  Country: None (occurrence: None)
  Receive Date: 20120504
  Receipt Date: 20120420
  Transmission Date: 20120825
  Serious: Yes (Life-Threatening, Other)
  Sender: FDA-Public Use
  Company Number: GB-WATSON-2012-07566

PATIENT
  Age: 47 Year
  Sex: Male

DRUGS (7)
  1. LANSOPRAZOLE [Concomitant]
     Indication: PROPHYLAXIS
     Dosage: LONG TERM USE
  2. GABAPENTIN [Suspect]
     Indication: NEURALGIA
     Dosage: UNK
     Route: 065
     Dates: start: 20110901, end: 20120401
  3. RAMIPRIL [Concomitant]
     Indication: PRODUCT USED FOR UNKNOWN INDICATION
     Dosage: LONG TERM USE
  4. IBUPROFEN [Concomitant]
     Indication: PAIN
     Dosage: LONG TERM USE
  5. ACETAMINOPHEN [Concomitant]
     Indication: PAIN
     Dosage: LONG TERM USE
  6. BENDROFLUMETHIAZIDE [Concomitant]
     Indication: HYPERTENSION
     Dosage: LONG TERM USE
  7. BISOPROLOL FUMARATE [Concomitant]
     Indication: PRODUCT USED FOR UNKNOWN INDICATION
     Dosage: 1.25 MG/KG MILLIGRAM (S)/KILOGRAM

REACTIONS (7)
  - DEPRESSION [None]
  - ANXIETY [None]
  - HOSTILITY [None]
  - SUICIDAL IDEATION [None]
  - CONDITION AGGRAVATED [None]
  - SLEEP DISORDER [None]
  - AMNESIA [None]
